FAERS Safety Report 20869191 (Version 1)
Quarter: 2022Q2

REPORT INFORMATION
  Report Type: Spontaneous
  Country: US (occurrence: None)
  Receive Date: 20220523
  Receipt Date: 20220523
  Transmission Date: 20220720
  Serious: No
  Sender: FDA-Public Use
  Company Number: None

PATIENT

DRUGS (2)
  1. HEPARIN SODIUM [Suspect]
     Active Substance: HEPARIN SODIUM
     Dosage: STRENGTH: 5000 USP UNITS PER ML?
     Route: 042
  2. VASOPRESSIN [Suspect]
     Active Substance: VASOPRESSIN
     Route: 042

REACTIONS (4)
  - Intercepted product administration error [None]
  - Product packaging confusion [None]
  - Product label confusion [None]
  - Wrong product stored [None]
